FAERS Safety Report 6229858-0 (Version None)
Quarter: 2009Q2

REPORT INFORMATION
  Report Type: 
  Country: None (occurrence: None)
  Receive Date: 20090615
  Receipt Date: 20090605
  Transmission Date: 20091009
  Serious: Yes (Other)
  Sender: FDA-Public Use
  Company Number: JP-PFIZER INC-2009225176

PATIENT
  Age: 81 Year

DRUGS (5)
  1. NORVASC [Suspect]
     Indication: HYPERTENSION
     Dosage: FREQUENCY: 2X/DAY, EVERY DAY;
     Route: 048
     Dates: start: 20090530
  2. MERISLON [Concomitant]
     Route: 048
  3. BUFFERIN [Concomitant]
     Route: 048
  4. NITROPEN [Concomitant]
     Route: 060
  5. FRANDOL [Concomitant]
     Route: 048

REACTIONS (1)
  - ECZEMA [None]
